FAERS Safety Report 21463665 (Version 2)
Quarter: 2022Q4

REPORT INFORMATION
  Report Type: Report from Study
  Country: US (occurrence: US)
  Receive Date: 20221017
  Receipt Date: 20221018
  Transmission Date: 20230113
  Serious: No
  Sender: FDA-Public Use
  Company Number: US-ABBVIE-4161622

PATIENT
  Sex: Female

DRUGS (1)
  1. HUMIRA [Suspect]
     Active Substance: ADALIMUMAB
     Indication: Colitis ulcerative
     Dosage: FORM STRENGTH- 40 MG, CITRATE FREE
     Route: 058

REACTIONS (4)
  - Fatigue [Unknown]
  - Product storage error [Unknown]
  - Drug ineffective [Recovering/Resolving]
  - Product administration error [Unknown]
